FAERS Safety Report 15729967 (Version 2)
Quarter: 2018Q4

REPORT INFORMATION
  Report Type: Spontaneous
  Country: US (occurrence: US)
  Receive Date: 20181217
  Receipt Date: 20181228
  Transmission Date: 20190205
  Serious: Yes (Other)
  Sender: FDA-Public Use
  Company Number: US-OTSUKA-2018_019857

PATIENT
  Sex: Male

DRUGS (2)
  1. ABILIFY [Suspect]
     Active Substance: ARIPIPRAZOLE
     Indication: MAJOR DEPRESSION
     Dosage: 20 MG, QD
     Route: 065
     Dates: start: 20080317, end: 20100801
  2. ABILIFY [Suspect]
     Active Substance: ARIPIPRAZOLE
     Indication: BIPOLAR DISORDER
     Dosage: UNK
     Route: 065

REACTIONS (10)
  - Bankruptcy [Unknown]
  - Impulse-control disorder [Unknown]
  - Economic problem [Unknown]
  - Gambling disorder [Recovered/Resolved]
  - Shoplifting [Recovered/Resolved]
  - Obsessive-compulsive disorder [Recovered/Resolved]
  - Loss of employment [Unknown]
  - Gastrointestinal surgery [Unknown]
  - Theft [Recovered/Resolved]
  - Divorced [Unknown]

NARRATIVE: CASE EVENT DATE: 2009
